FAERS Safety Report 5879115-7 (Version None)
Quarter: 2008Q3

REPORT INFORMATION
  Report Type: 
  Country: None (occurrence: None)
  Receive Date: 20080912
  Receipt Date: 20080708
  Transmission Date: 20090109
  Serious: No
  Sender: FDA-Public Use
  Company Number: US-BAYER-200828389NA

PATIENT
  Age: 33 Year
  Sex: Female
  Weight: 49 kg

DRUGS (3)
  1. YAZ [Suspect]
     Indication: MOOD SWINGS
     Route: 048
     Dates: start: 20080201
  2. WELLBUTRIN [Concomitant]
  3. XANAX [Concomitant]

REACTIONS (5)
  - DIZZINESS [None]
  - MIGRAINE [None]
  - NAUSEA [None]
  - NO ADVERSE EVENT [None]
  - OFF LABEL USE [None]
